FAERS Safety Report 23803976 (Version 1)
Quarter: 2024Q2

REPORT INFORMATION
  Report Type: Other
  Country: CN (occurrence: None)
  Receive Date: 20240501
  Receipt Date: 20240501
  Transmission Date: 20240716
  Serious: Yes (Other)
  Sender: FDA-Public Use
  Company Number: CN-ROCHE-3551841

PATIENT

DRUGS (2)
  1. BEVACIZUMAB [Suspect]
     Active Substance: BEVACIZUMAB
     Indication: Hepatocellular carcinoma
     Dosage: 21 DAYS COURSE
     Route: 042
  2. ATEZOLIZUMAB [Suspect]
     Active Substance: ATEZOLIZUMAB
     Indication: Hepatocellular carcinoma
     Dosage: 21 DAYS COURSE
     Route: 042

REACTIONS (5)
  - Hypertension [Unknown]
  - Proteinuria [Unknown]
  - Malaise [Unknown]
  - Haemorrhage [Unknown]
  - Pruritus [Unknown]
